FAERS Safety Report 4653437-X (Version None)
Quarter: 2005Q2

REPORT INFORMATION
  Report Type: 
  Country: None (occurrence: None)
  Receive Date: 20050503
  Receipt Date: 20050420
  Transmission Date: 20051028
  Serious: Yes (Hospitalization, Other)
  Sender: FDA-Public Use
  Company Number: 2005046307

PATIENT
  Age: 79 Year
  Sex: Female

DRUGS (1)
  1. AROMASIN [Suspect]
     Indication: BREAST CANCER
     Dosage: 25 MG (1 IN 1 D), ORAL
     Route: 048
     Dates: start: 20041203, end: 20050301

REACTIONS (4)
  - ANAEMIA [None]
  - CARDIAC FAILURE [None]
  - CHEST PAIN [None]
  - PERICARDIAL EFFUSION [None]
